FAERS Safety Report 7131737-1 (Version None)
Quarter: 2010Q4

REPORT INFORMATION
  Report Type: 
  Country: None (occurrence: None)
  Receive Date: 20101202
  Receipt Date: 20101108
  Transmission Date: 20110411
  Serious: Yes (Other)
  Sender: FDA-Public Use
  Company Number: NL-AMGEN-NLDSP2010004516

PATIENT

DRUGS (3)
  1. ENBREL [Suspect]
     Indication: PRODUCT USED FOR UNKNOWN INDICATION
     Dosage: 50 MG/ML WEEKLY
     Dates: start: 20070212, end: 20101108
  2. BROMAZEPAM [Concomitant]
     Dosage: 3 MG, 3X/DAY
  3. VENLAFAXINE [Concomitant]
     Dosage: 75 MG, 1X/DAY

REACTIONS (1)
  - BREAST CANCER [None]
